FAERS Safety Report 9802194 (Version 2)
Quarter: 2014Q1

REPORT INFORMATION
  Report Type: Spontaneous
  Country: FR (occurrence: FR)
  Receive Date: 20140107
  Receipt Date: 20140204
  Transmission Date: 20141002
  Serious: Yes (Hospitalization)
  Sender: FDA-Public Use
  Company Number: FR-ALLERGAN-1320267US

PATIENT
  Age: 65 Year
  Sex: Male

DRUGS (4)
  1. BOTOX [Suspect]
     Indication: MUSCLE SPASTICITY
     Dosage: 250 UNITS, SINGLE
     Route: 030
     Dates: start: 20131230, end: 20131230
  2. BETADINE                           /00080001/ [Concomitant]
     Indication: ANTI-INFECTIVE THERAPY
     Dosage: UNK
     Route: 061
     Dates: start: 20131230, end: 20131230
  3. UNKNOWN ANTIHYPERTENSION MED [Concomitant]
     Indication: HYPERTENSION
  4. UNKNOWN DIABETIC MED [Concomitant]
     Indication: DIABETES MELLITUS

REACTIONS (4)
  - Cough [Recovered/Resolved]
  - Blood pressure increased [Recovered/Resolved]
  - Injection site plaque [Recovered/Resolved]
  - Drug hypersensitivity [Unknown]
